FAERS Safety Report 10007919 (Version 2)
Quarter: 2014Q2

REPORT INFORMATION
  Report Type: Report from Study
  Country: US (occurrence: US)
  Receive Date: 20140313
  Receipt Date: 20140526
  Transmission Date: 20141212
  Serious: Yes (Other)
  Sender: FDA-Public Use
  Company Number: PHEH2014US005047

PATIENT
  Sex: Male

DRUGS (2)
  1. GLEEVEC [Suspect]
     Indication: COLON CANCER
     Dosage: 400 MG, QD
     Route: 048
  2. GLEEVEC [Suspect]
     Indication: GASTRIC CANCER
     Dosage: 2 DF, DAILY
     Route: 048

REACTIONS (2)
  - Bladder neoplasm [Unknown]
  - Toxicity to various agents [Unknown]
